FAERS Safety Report 6546121-9 (Version None)
Quarter: 2010Q1

REPORT INFORMATION
  Report Type: 
  Country: None (occurrence: None)
  Receive Date: 20100122
  Receipt Date: 20100113
  Transmission Date: 20100710
  Serious: Yes (Hospitalization)
  Sender: FDA-Public Use
  Company Number: US-BIOGENIDEC-2009BI042319

PATIENT
  Age: 52 Year
  Sex: Female
  Weight: 70 kg

DRUGS (3)
  1. AVONEX [Suspect]
     Indication: MULTIPLE SCLEROSIS
     Route: 030
     Dates: start: 20020917, end: 20020101
  2. AVONEX [Suspect]
     Route: 030
     Dates: start: 20020101, end: 20030101
  3. AVONEX [Suspect]
     Route: 030
     Dates: start: 20030101

REACTIONS (8)
  - COCCYDYNIA [None]
  - DYSPNOEA [None]
  - GAIT DISTURBANCE [None]
  - HYPERAESTHESIA [None]
  - MUSCULOSKELETAL PAIN [None]
  - PAIN IN EXTREMITY [None]
  - SPINAL DISORDER [None]
  - SYNOVIAL CYST [None]
